FAERS Safety Report 12305517 (Version 1)
Quarter: 2016Q2

REPORT INFORMATION
  Report Type: Spontaneous
  Country: US (occurrence: None)
  Receive Date: 20160425
  Receipt Date: 20160425
  Transmission Date: 20160815
  Serious: No
  Sender: FDA-Public Use
  Company Number: None

PATIENT
  Age: 65 Year
  Sex: Female

DRUGS (1)
  1. IMATINIB 400MG TAB SUN PHARMACEUTICALS [Suspect]
     Active Substance: IMATINIB
     Indication: CHRONIC MYELOID LEUKAEMIA
     Route: 048
     Dates: start: 20160308, end: 20160408

REACTIONS (3)
  - Condition aggravated [None]
  - Neoplasm malignant [None]
  - Product substitution issue [None]

NARRATIVE: CASE EVENT DATE: 201603
